FAERS Safety Report 9740969 (Version 1)
Quarter: 2013Q4

REPORT INFORMATION
  Report Type: Spontaneous
  Country: US (occurrence: US)
  Receive Date: 20131209
  Receipt Date: 20131209
  Transmission Date: 20140711
  Serious: No
  Sender: FDA-Public Use
  Company Number: US-BIOGENIDEC-2013BI100824

PATIENT
  Age: 60 Year
  Sex: Female
  Weight: 56 kg

DRUGS (16)
  1. TECFIDERA [Suspect]
     Indication: MULTIPLE SCLEROSIS
     Route: 048
  2. TECFIDERA [Suspect]
     Indication: MULTIPLE SCLEROSIS
     Route: 048
     Dates: start: 201308
  3. AMPYRA [Concomitant]
  4. BACLOFEN [Concomitant]
  5. MAGNESIUM [Concomitant]
  6. ASPIRIN [Concomitant]
  7. ATENOLOL [Concomitant]
  8. NITROFUR [Concomitant]
  9. VITAMIN E [Concomitant]
  10. VITAMIN C [Concomitant]
  11. VITAMIN D3 [Concomitant]
  12. OMEGA 3 [Concomitant]
  13. CALCIUM+D [Concomitant]
  14. PROBIOTIC [Concomitant]
  15. MACRODANTIN [Concomitant]
  16. UBIQUINOL [Concomitant]

REACTIONS (3)
  - Flushing [Unknown]
  - Feeling hot [Not Recovered/Not Resolved]
  - Abdominal discomfort [Unknown]
